FAERS Safety Report 8832612 (Version 1)
Quarter: 2012Q4

REPORT INFORMATION
  Report Type: 
  Country: US (occurrence: US)
  Receive Date: 20121010
  Receipt Date: 20121010
  Transmission Date: 20130627
  Serious: Yes (Hospitalization)
  Sender: FDA-Public Use
  Company Number: US-BRISTOL-MYERS SQUIBB COMPANY-17011404

PATIENT
  Age: 52 Year
  Sex: Male

DRUGS (11)
  1. REYATAZ [Suspect]
  2. RITONAVIR [Concomitant]
  3. TRUVADA [Concomitant]
  4. KEPPRA [Concomitant]
  5. PREVACID [Concomitant]
  6. VERSED [Concomitant]
  7. METOPROLOL [Concomitant]
  8. ACETYLSALICYLIC ACID [Concomitant]
  9. FLAGYL [Concomitant]
  10. ERYTHROMYCIN [Concomitant]
  11. HEPARIN [Concomitant]
     Dosage: inf

REACTIONS (1)
  - Respiratory failure [Unknown]
